FAERS Safety Report 5148115-7 (Version None)
Quarter: 2006Q4

REPORT INFORMATION
  Report Type: 
  Country: None (occurrence: None)
  Receive Date: 20061110
  Receipt Date: 20060804
  Transmission Date: 20070319
  Serious: Yes (Hospitalization)
  Sender: FDA-Public Use
  Company Number: US-ROCHE-458676

PATIENT
  Age: 15 Year
  Sex: Male
  Weight: 68 kg

DRUGS (2)
  1. ACCUTANE [Suspect]
     Indication: DRUG USE FOR UNKNOWN INDICATION
     Route: 048
     Dates: start: 19860210, end: 19870929
  2. ACCUTANE [Suspect]
     Dosage: UNSPECIFIED DATE PRIOR TO 13 AUGUST 1985
     Route: 065

REACTIONS (47)
  - ACIDOSIS [None]
  - ANAEMIA [None]
  - ANTINEUTROPHIL CYTOPLASMIC ANTIBODY POSITIVE [None]
  - AZOTAEMIA [None]
  - BILE DUCT STENOSIS [None]
  - CHOLANGITIS SCLEROSING [None]
  - CHRONIC HEPATIC FAILURE [None]
  - COAGULOPATHY [None]
  - COLITIS [None]
  - COLITIS ULCERATIVE [None]
  - CROHN'S DISEASE [None]
  - DYSPEPSIA [None]
  - FATIGUE [None]
  - FLUID RETENTION [None]
  - GALLBLADDER DISORDER [None]
  - GASTRIC DISORDER [None]
  - GASTROENTERITIS [None]
  - GASTROINTESTINAL DISORDER [None]
  - GASTROOESOPHAGEAL REFLUX DISEASE [None]
  - HAEMATOCHEZIA [None]
  - HEPATIC CIRRHOSIS [None]
  - HEPATIC FIBROSIS [None]
  - HEPATOMEGALY [None]
  - HYPERGLYCAEMIA [None]
  - HYPERSPLENISM [None]
  - HYPONATRAEMIA [None]
  - ILEITIS [None]
  - INFLAMMATORY BOWEL DISEASE [None]
  - IRON DEFICIENCY ANAEMIA [None]
  - IRRITABLE BOWEL SYNDROME [None]
  - LETHARGY [None]
  - LEUKOPENIA [None]
  - LIVER TRANSPLANT [None]
  - LIVER TRANSPLANT REJECTION [None]
  - NEPHROLITHIASIS [None]
  - OEDEMA PERIPHERAL [None]
  - PANCREATITIS ACUTE [None]
  - PORTAL HYPERTENSION [None]
  - PORTAL HYPERTENSIVE GASTROPATHY [None]
  - PORTAL VEIN THROMBOSIS [None]
  - PRESYNCOPE [None]
  - PYREXIA [None]
  - RECTAL HAEMORRHAGE [None]
  - SPLENOMEGALY [None]
  - THERAPY NON-RESPONDER [None]
  - THROMBOCYTOPENIA [None]
  - VARICES OESOPHAGEAL [None]
